FAERS Safety Report 5535050-5 (Version None)
Quarter: 2007Q4

REPORT INFORMATION
  Report Type: 
  Country: None (occurrence: None)
  Receive Date: 20071203
  Receipt Date: 20071121
  Transmission Date: 20080405
  Serious: No
  Sender: FDA-Public Use
  Company Number: 2007BI023330

PATIENT
  Age: 54 Year
  Sex: Female

DRUGS (1)
  1. NATALIZUMAB [Suspect]
     Indication: MULTIPLE SCLEROSIS
     Dosage: 300 MG;QM;IV
     Route: 042
     Dates: start: 20070118, end: 20070914

REACTIONS (2)
  - DRUG DELIVERY DEVICE IMPLANTATION [None]
  - NO THERAPEUTIC RESPONSE [None]
